FAERS Safety Report 20499744 (Version 1)
Quarter: 2022Q1

REPORT INFORMATION
  Report Type: Spontaneous
  Country: US (occurrence: US)
  Receive Date: 20220222
  Receipt Date: 20220222
  Transmission Date: 20220423
  Serious: No
  Sender: FDA-Public Use
  Company Number: US-UCBSA-2021008470

PATIENT
  Sex: Female
  Weight: 52.163 kg

DRUGS (1)
  1. KEPPRA [Suspect]
     Active Substance: LEVETIRACETAM
     Indication: Epilepsy
     Dosage: 500 MILLIGRAM, 2X/DAY (BID)
     Route: 048
     Dates: start: 201805

REACTIONS (4)
  - Weight decreased [Unknown]
  - Insomnia [Unknown]
  - Increased tendency to bruise [Unknown]
  - Thinking abnormal [Unknown]
